FAERS Safety Report 9909482 (Version 1)
Quarter: 2014Q1

REPORT INFORMATION
  Report Type: Spontaneous
  Country: US (occurrence: None)
  Receive Date: 20140214
  Receipt Date: 20140214
  Transmission Date: 20141002
  Serious: No
  Sender: FDA-Public Use
  Company Number: None

PATIENT
  Age: 52 Year
  Sex: Male

DRUGS (4)
  1. LANTUS [Suspect]
     Dosage: 45 UNITS   SQ
     Route: 058
  2. INSULIN LISPRO [Concomitant]
  3. JANUVIA [Concomitant]
  4. REGULAR INSULIN [Concomitant]

REACTIONS (1)
  - Blood glucose decreased [None]
